FAERS Safety Report 5752114-1 (Version None)
Quarter: 2008Q2

REPORT INFORMATION
  Report Type: 
  Country: None (occurrence: None)
  Receive Date: 20080529
  Receipt Date: 20080521
  Transmission Date: 20081010
  Serious: Yes (Other)
  Sender: FDA-Public Use
  Company Number: US-BAYER-200714272BCC

PATIENT
  Age: 75 Year
  Sex: Male
  Weight: 113 kg

DRUGS (11)
  1. ALEVE [Suspect]
     Indication: ARTHRITIS
     Dosage: UNIT DOSE: 220 MG
     Route: 048
     Dates: start: 20071101, end: 20071225
  2. ALEVE [Suspect]
     Dosage: TOTAL DAILY DOSE: 220 MG  UNIT DOSE: 220 MG
     Route: 048
     Dates: start: 20071225, end: 20071225
  3. ASPIRIN [Suspect]
     Indication: CARDIAC OPERATION
     Route: 048
  4. CARDIA XT [Concomitant]
  5. TRAZODONE HCL [Concomitant]
  6. COZAAR [Concomitant]
  7. TOPROL-XL [Concomitant]
  8. PREVACID [Concomitant]
  9. AMBIEN [Concomitant]
  10. GLUCOSAMINE CHONDROITIN [Concomitant]
  11. ASPIRIN [Concomitant]
     Route: 048

REACTIONS (3)
  - ABDOMINAL PAIN UPPER [None]
  - BLOOD PRESSURE INCREASED [None]
  - DYSPEPSIA [None]
